FAERS Safety Report 18962950 (Version 1)
Quarter: 2021Q1

REPORT INFORMATION
  Report Type: Spontaneous
  Country: US (occurrence: US)
  Receive Date: 20210302
  Receipt Date: 20210302
  Transmission Date: 20210420
  Serious: Yes (Other)
  Sender: FDA-Public Use
  Company Number: None

PATIENT
  Age: 71 Year
  Sex: Male
  Weight: 97.52 kg

DRUGS (2)
  1. CHLOROPROCAINE HYDROCHLORIDE(CHLOROPROCAINE HCL 2% INJ) [Suspect]
     Active Substance: CHLOROPROCAINE HYDROCHLORIDE
     Indication: SURGERY
     Dates: start: 20200819, end: 20200819
  2. CHLOROPROCAINE HYDROCHLORIDE(CHLOROPROCAINE HCL 2% INJ) [Suspect]
     Active Substance: CHLOROPROCAINE HYDROCHLORIDE
     Indication: PAIN

REACTIONS (1)
  - Drug ineffective [None]

NARRATIVE: CASE EVENT DATE: 20200819
